FAERS Safety Report 18436562 (Version 1)
Quarter: 2020Q4

REPORT INFORMATION
  Report Type: Spontaneous
  Country: GB (occurrence: GB)
  Receive Date: 20201028
  Receipt Date: 20201028
  Transmission Date: 20210114
  Serious: Yes (Death)
  Sender: FDA-Public Use
  Company Number: GB-TEVA-2020-GB-1841387

PATIENT
  Age: 34 Year
  Sex: Female

DRUGS (4)
  1. PREGABALIN. [Suspect]
     Active Substance: PREGABALIN
     Dosage: 800 MG
     Route: 002
     Dates: start: 20200720, end: 20200829
  2. STEXEROL-D3 [Concomitant]
  3. OTOMIZE (ACETIC ACID (+) DEXAMETHASONE (+) NEOMYCIN SULFATE) [Concomitant]
     Active Substance: ACETIC ACID\DEXAMETHASONE\NEOMYCIN SULFATE
  4. VENLAFAXINE [Concomitant]
     Active Substance: VENLAFAXINE HYDROCHLORIDE
     Dosage: 75 MG
     Route: 048

REACTIONS (1)
  - Death [Fatal]
